FAERS Safety Report 5600526-9 (Version None)
Quarter: 2008Q1

REPORT INFORMATION
  Report Type: 
  Country: None (occurrence: None)
  Receive Date: 20080123
  Receipt Date: 20080115
  Transmission Date: 20080703
  Serious: Yes (Other)
  Sender: FDA-Public Use
  Company Number: US-ROXANE LABORATORIES, INC-2008-DE-00274GD

PATIENT

DRUGS (3)
  1. MORPHINE [Suspect]
     Indication: PROCEDURAL PAIN
  2. MORPHINE [Suspect]
  3. MORPHINE [Suspect]

REACTIONS (3)
  - MEDICATION ERROR [None]
  - RESPIRATORY DEPRESSION [None]
  - SEDATION [None]
